FAERS Safety Report 8398340-7 (Version None)
Quarter: 2012Q2

REPORT INFORMATION
  Report Type: 
  Country: None (occurrence: None)
  Receive Date: 20120524
  Receipt Date: 20120517
  Transmission Date: 20120825
  Serious: Yes (Hospitalization)
  Sender: FDA-Public Use
  Company Number: IMP_05903_2012

PATIENT
  Sex: Female

DRUGS (3)
  1. ACENOCOUMAROL [Concomitant]
  2. DIGOXIN [Suspect]
     Indication: ATRIAL FIBRILLATION
     Dosage: DF
  3. ATENOLOL [Concomitant]

REACTIONS (14)
  - PCO2 INCREASED [None]
  - ELECTROCARDIOGRAM R ON T PHENOMENON [None]
  - BLOOD CALCIUM DECREASED [None]
  - EXTRASYSTOLES [None]
  - BRADYCARDIA [None]
  - VOMITING [None]
  - BLOOD PH DECREASED [None]
  - SYNCOPE [None]
  - VENTRICULAR FIBRILLATION [None]
  - ELECTROCARDIOGRAM QT PROLONGED [None]
  - TOXICITY TO VARIOUS AGENTS [None]
  - BLOOD PRESSURE SYSTOLIC INCREASED [None]
  - BLOOD GLUCOSE INCREASED [None]
  - VENTRICULAR TACHYCARDIA [None]
